FAERS Safety Report 20862792 (Version 3)
Quarter: 2022Q4

REPORT INFORMATION
  Report Type: Spontaneous
  Country: US (occurrence: US)
  Receive Date: 20220523
  Receipt Date: 20221104
  Transmission Date: 20230113
  Serious: Yes (Death)
  Sender: FDA-Public Use
  Company Number: US-PFIZER INC-202200720154

PATIENT
  Age: 79 Year
  Sex: Female

DRUGS (2)
  1. IBRANCE [Suspect]
     Active Substance: PALBOCICLIB
     Indication: Breast cancer female
     Dosage: 125 MG
     Dates: start: 20220511
  2. IBRANCE [Suspect]
     Active Substance: PALBOCICLIB
     Dosage: 100 MG, CYCLIC (DAILY ON DAYS 1-21 OF EACH 28 DAY CYCLE)
     Route: 048
     Dates: start: 20220602

REACTIONS (8)
  - Death [Fatal]
  - Neoplasm progression [Unknown]
  - Fatigue [Unknown]
  - Fatigue [Unknown]
  - Salivary hypersecretion [Unknown]
  - Aphasia [Unknown]
  - White blood cell count decreased [Unknown]
  - Confusional state [Unknown]

NARRATIVE: CASE EVENT DATE: 20220101
